FAERS Safety Report 6168558-2 (Version None)
Quarter: 2009Q2

REPORT INFORMATION
  Report Type: 
  Country: None (occurrence: None)
  Receive Date: 20090427
  Receipt Date: 20090422
  Transmission Date: 20091009
  Serious: Yes (Life-Threatening, Hospitalization)
  Sender: FDA-Public Use
  Company Number: FR-ASTRAZENECA-2009CG00811

PATIENT
  Age: 23630 Day
  Sex: Male

DRUGS (4)
  1. DIPRIVAN [Suspect]
     Indication: SURGERY
     Route: 042
     Dates: start: 20081112, end: 20081112
  2. SUFENTA PRESERVATIVE FREE [Suspect]
     Indication: SURGERY
     Route: 042
     Dates: start: 20081112, end: 20081112
  3. NIMBEX [Suspect]
     Indication: SURGERY
     Route: 042
     Dates: start: 20081112, end: 20081112
  4. CEFACIDAL [Concomitant]
     Indication: SURGERY
     Route: 042
     Dates: start: 20081112, end: 20081112

REACTIONS (1)
  - CIRCULATORY COLLAPSE [None]
